FAERS Safety Report 14235443 (Version 5)
Quarter: 2017Q4

REPORT INFORMATION
  Report Type: Spontaneous
  Country: BG (occurrence: BG)
  Receive Date: 20171129
  Receipt Date: 20171227
  Transmission Date: 20180321
  Serious: Yes (Other)
  Sender: FDA-Public Use
  Company Number: BG-PFIZER INC-2017509904

PATIENT
  Age: 37 Year
  Sex: Female
  Weight: 62 kg

DRUGS (4)
  1. SOLU-MEDROL [Concomitant]
     Active Substance: METHYLPREDNISOLONE SODIUM SUCCINATE
     Indication: LIP SWELLING
     Dosage: UNK
     Dates: start: 20171108
  2. MUCOSOLVAN DS [Concomitant]
     Dosage: 30 MG, UNK
     Dates: start: 20171104
  3. MALTOFER FOL [Concomitant]
     Active Substance: FOLIC ACID\IRON POLYMALTOSE
     Dosage: UNK
     Dates: start: 201710
  4. DALACIN C [Suspect]
     Active Substance: CLINDAMYCIN PHOSPHATE
     Indication: INFLUENZA LIKE ILLNESS
     Dosage: 150 MG, 3X/DAY
     Route: 048
     Dates: start: 20171103, end: 20171107

REACTIONS (15)
  - Oral mucosal blistering [Recovered/Resolved]
  - Arthralgia [Recovered/Resolved]
  - Swollen tongue [Recovered/Resolved]
  - Oropharyngeal blistering [Recovered/Resolved]
  - Lip swelling [Recovered/Resolved]
  - Herpes simplex [Recovered/Resolved]
  - Headache [Recovered/Resolved]
  - Tongue coated [Recovered/Resolved]
  - Asphyxia [Recovered/Resolved]
  - Lymphadenopathy [Recovered/Resolved]
  - Swelling face [Recovered/Resolved]
  - Oral pain [Recovered/Resolved]
  - Dark circles under eyes [Recovered/Resolved]
  - Rash papular [Recovered/Resolved]
  - Plicated tongue [Recovered/Resolved]

NARRATIVE: CASE EVENT DATE: 20171107
